FAERS Safety Report 20562384 (Version 13)
Quarter: 2022Q4

REPORT INFORMATION
  Report Type: Report from Study
  Country: JP (occurrence: JP)
  Receive Date: 20220307
  Receipt Date: 20221123
  Transmission Date: 20230112
  Serious: Yes (Death, Life-Threatening, Hospitalization, Other)
  Sender: FDA-Public Use
  Company Number: JP-ONO-2022JP006266

PATIENT
  Age: 67 Year
  Sex: Male
  Weight: 57.1 kg

DRUGS (66)
  1. OPDIVO [Suspect]
     Active Substance: NIVOLUMAB
     Indication: Non-small cell lung cancer recurrent
     Dosage: 240 MG
     Route: 041
     Dates: start: 20211026, end: 20211026
  2. OPDIVO [Suspect]
     Active Substance: NIVOLUMAB
  3. YERVOY [Suspect]
     Active Substance: IPILIMUMAB
     Indication: Non-small cell lung cancer recurrent
     Dosage: 50 MG
     Route: 041
     Dates: start: 20211026, end: 20211026
  4. YERVOY [Suspect]
     Active Substance: IPILIMUMAB
     Route: 041
     Dates: start: 20211026, end: 20211103
  5. YERVOY [Suspect]
     Active Substance: IPILIMUMAB
  6. ANAMORELIN HYDROCHLORIDE [Suspect]
     Active Substance: ANAMORELIN HYDROCHLORIDE
     Indication: Cachexia
     Dosage: 100 MG, EVERYDAY
     Route: 048
     Dates: start: 20211103, end: 20211105
  7. ANAMORELIN HYDROCHLORIDE [Suspect]
     Active Substance: ANAMORELIN HYDROCHLORIDE
  8. ANAMORELIN HYDROCHLORIDE [Suspect]
     Active Substance: ANAMORELIN HYDROCHLORIDE
  9. ANAMORELIN HYDROCHLORIDE [Suspect]
     Active Substance: ANAMORELIN HYDROCHLORIDE
  10. ANAMORELIN HYDROCHLORIDE [Suspect]
     Active Substance: ANAMORELIN HYDROCHLORIDE
  11. CARBOPLATIN [Suspect]
     Active Substance: CARBOPLATIN
     Indication: Non-small cell lung cancer recurrent
     Dosage: 450 MG
     Route: 065
     Dates: start: 20211026, end: 20211026
  12. CARBOPLATIN [Suspect]
     Active Substance: CARBOPLATIN
     Route: 065
     Dates: start: 20211026, end: 20211103
  13. CARBOPLATIN [Suspect]
     Active Substance: CARBOPLATIN
  14. CARBOPLATIN [Suspect]
     Active Substance: CARBOPLATIN
  15. CARBOPLATIN [Suspect]
     Active Substance: CARBOPLATIN
  16. CARBOPLATIN [Suspect]
     Active Substance: CARBOPLATIN
  17. PACLITAXEL [Suspect]
     Active Substance: PACLITAXEL
     Indication: Non-small cell lung cancer recurrent
     Dosage: 100 MG
     Route: 065
     Dates: start: 20211026, end: 20211026
  18. PACLITAXEL [Suspect]
     Active Substance: PACLITAXEL
     Route: 065
     Dates: start: 20211026, end: 20211130
  19. PACLITAXEL [Suspect]
     Active Substance: PACLITAXEL
  20. PACLITAXEL [Suspect]
     Active Substance: PACLITAXEL
  21. PACLITAXEL [Suspect]
     Active Substance: PACLITAXEL
  22. PACLITAXEL [Suspect]
     Active Substance: PACLITAXEL
  23. REBAMIPIDE [Concomitant]
     Active Substance: REBAMIPIDE
     Dosage: 300 MG, EVERYDAY
     Route: 048
     Dates: end: 20211104
  24. REBAMIPIDE [Concomitant]
     Active Substance: REBAMIPIDE
     Indication: Product used for unknown indication
  25. LICKLE [Concomitant]
     Active Substance: ISOLEUCINE\LEUCINE\VALINE
     Indication: Hypoalbuminaemia
     Dosage: 14.22 G, EVERYDAY
     Route: 048
     Dates: end: 20211104
  26. LICKLE [Concomitant]
     Active Substance: ISOLEUCINE\LEUCINE\VALINE
  27. LICKLE [Concomitant]
     Active Substance: ISOLEUCINE\LEUCINE\VALINE
  28. LICKLE [Concomitant]
     Active Substance: ISOLEUCINE\LEUCINE\VALINE
  29. LICKLE [Concomitant]
     Active Substance: ISOLEUCINE\LEUCINE\VALINE
  30. LICKLE [Concomitant]
     Active Substance: ISOLEUCINE\LEUCINE\VALINE
  31. LICKLE [Concomitant]
     Active Substance: ISOLEUCINE\LEUCINE\VALINE
  32. BEPOTASTINE BESYLATE [Concomitant]
     Active Substance: BEPOTASTINE BESYLATE
     Indication: Rash
     Dosage: 20 MG, EVERYDAY
     Route: 048
     Dates: end: 20211104
  33. BEPOTASTINE BESYLATE [Concomitant]
     Active Substance: BEPOTASTINE BESYLATE
  34. BEPOTASTINE BESYLATE [Concomitant]
     Active Substance: BEPOTASTINE BESYLATE
  35. BEPOTASTINE BESYLATE [Concomitant]
     Active Substance: BEPOTASTINE BESYLATE
  36. BEPOTASTINE BESYLATE [Concomitant]
     Active Substance: BEPOTASTINE BESYLATE
  37. BEPOTASTINE BESYLATE [Concomitant]
     Active Substance: BEPOTASTINE BESYLATE
  38. BEPOTASTINE BESYLATE [Concomitant]
     Active Substance: BEPOTASTINE BESYLATE
  39. LOXOPROFEN SODIUM [Concomitant]
     Active Substance: LOXOPROFEN SODIUM
     Dosage: 180 MG, EVERYDAY
     Route: 048
     Dates: end: 20211104
  40. LOXOPROFEN SODIUM [Concomitant]
     Active Substance: LOXOPROFEN SODIUM
     Indication: Product used for unknown indication
  41. LOXOPROFEN SODIUM [Concomitant]
     Active Substance: LOXOPROFEN SODIUM
  42. LOXOPROFEN SODIUM [Concomitant]
     Active Substance: LOXOPROFEN SODIUM
  43. LOXOPROFEN SODIUM [Concomitant]
     Active Substance: LOXOPROFEN SODIUM
  44. LOXOPROFEN SODIUM [Concomitant]
     Active Substance: LOXOPROFEN SODIUM
  45. LOXOPROFEN SODIUM [Concomitant]
     Active Substance: LOXOPROFEN SODIUM
  46. VITAMINS [Concomitant]
     Active Substance: VITAMINS
     Indication: Vitamin B1 deficiency
     Dosage: 3 DF, EVERYDAY
     Route: 048
     Dates: end: 20211104
  47. VITAMINS [Concomitant]
     Active Substance: VITAMINS
     Indication: Vitamin B2 deficiency
  48. VITAMINS [Concomitant]
     Active Substance: VITAMINS
     Indication: Folate deficiency
  49. VITAMINS [Concomitant]
     Active Substance: VITAMINS
     Indication: Prophylaxis
  50. MIROGABALIN BESYLATE [Concomitant]
     Active Substance: MIROGABALIN BESYLATE
     Indication: Neuropathy peripheral
     Dosage: 2.5 MG, EVERYDAY
     Route: 048
     Dates: start: 20211103, end: 20211104
  51. MIROGABALIN BESYLATE [Concomitant]
     Active Substance: MIROGABALIN BESYLATE
     Route: 048
     Dates: end: 20211104
  52. MIROGABALIN BESYLATE [Concomitant]
     Active Substance: MIROGABALIN BESYLATE
  53. MIROGABALIN BESYLATE [Concomitant]
     Active Substance: MIROGABALIN BESYLATE
  54. MIROGABALIN BESYLATE [Concomitant]
     Active Substance: MIROGABALIN BESYLATE
  55. MIROGABALIN BESYLATE [Concomitant]
     Active Substance: MIROGABALIN BESYLATE
  56. MIROGABALIN BESYLATE [Concomitant]
     Active Substance: MIROGABALIN BESYLATE
  57. CYMBALTA [Concomitant]
     Active Substance: DULOXETINE HYDROCHLORIDE
     Indication: Neuropathy peripheral
     Dosage: 20 MG, EVERYDAY
     Route: 048
     Dates: end: 20211104
  58. CYMBALTA [Concomitant]
     Active Substance: DULOXETINE HYDROCHLORIDE
  59. CYMBALTA [Concomitant]
     Active Substance: DULOXETINE HYDROCHLORIDE
  60. CYMBALTA [Concomitant]
     Active Substance: DULOXETINE HYDROCHLORIDE
  61. CYMBALTA [Concomitant]
     Active Substance: DULOXETINE HYDROCHLORIDE
  62. CYMBALTA [Concomitant]
     Active Substance: DULOXETINE HYDROCHLORIDE
  63. CYMBALTA [Concomitant]
     Active Substance: DULOXETINE HYDROCHLORIDE
  64. NEUROVITAN [CYANOCOBALAMIN;INTRINSIC FACTOR;PYRIDOXINE HYDROCHLORIDE;T [Concomitant]
     Indication: Vitamin B1 deficiency
     Dosage: 3 DF, EVERYDAY
     Route: 048
     Dates: end: 20211104
  65. NEUROVITAN [CYANOCOBALAMIN;INTRINSIC FACTOR;PYRIDOXINE HYDROCHLORIDE;T [Concomitant]
     Indication: Vitamin B2 deficiency
     Route: 048
  66. NEUROVITAN [CYANOCOBALAMIN;INTRINSIC FACTOR;PYRIDOXINE HYDROCHLORIDE;T [Concomitant]
     Indication: Folate deficiency
     Route: 048

REACTIONS (8)
  - Bacteraemia [Unknown]
  - Septic shock [Unknown]
  - Febrile neutropenia [Unknown]
  - Subarachnoid haemorrhage [Not Recovered/Not Resolved]
  - Immune thrombocytopenia [Recovered/Resolved]
  - Fall [Unknown]
  - Non-small cell lung cancer [Fatal]
  - Large intestinal ulcer haemorrhage [Recovering/Resolving]

NARRATIVE: CASE EVENT DATE: 20211103
